FAERS Safety Report 6237355-1 (Version None)
Quarter: 2009Q2

REPORT INFORMATION
  Report Type: 
  Country: None (occurrence: None)
  Receive Date: 20090619
  Receipt Date: 20090618
  Transmission Date: 20091009
  Serious: Yes (Death, Other)
  Sender: FDA-Public Use
  Company Number: PHHY2009AU23351

PATIENT
  Sex: Male

DRUGS (5)
  1. CLOZARIL [Suspect]
     Dosage: 125 MG DAILY
     Dates: start: 20090311, end: 20090324
  2. CLOZARIL [Suspect]
     Dosage: 400 MG DAILY
     Dates: start: 20090324, end: 20090407
  3. CLOZARIL [Suspect]
     Dosage: 450 MG DAILY
     Dates: start: 20090407, end: 20090414
  4. CLOZARIL [Suspect]
     Dosage: 500 MG DAILY
     Dates: start: 20090414, end: 20090512
  5. CLOZARIL [Suspect]
     Dosage: 550 MG DAILY
     Dates: start: 20090512

REACTIONS (3)
  - LOSS OF CONSCIOUSNESS [None]
  - SUDDEN DEATH [None]
  - SYNCOPE [None]
